FAERS Safety Report 14650870 (Version 6)
Quarter: 2018Q3

REPORT INFORMATION
  Report Type: Spontaneous
  Country: US (occurrence: US)
  Receive Date: 20180316
  Receipt Date: 20180918
  Transmission Date: 20181010
  Serious: No
  Sender: FDA-Public Use
  Company Number: US-ACTELION-A-US2018-169223

PATIENT
  Age: 76 Year
  Sex: Female

DRUGS (5)
  1. REGLAN [Concomitant]
     Active Substance: METOCLOPRAMIDE HYDROCHLORIDE
     Dosage: UNK
  2. TADALAFIL [Concomitant]
     Active Substance: TADALAFIL
     Dosage: 40 MG, QD
     Dates: start: 20141224
  3. OPSUMIT [Suspect]
     Active Substance: MACITENTAN
     Indication: PULMONARY ARTERIAL HYPERTENSION
     Dosage: 10 MG, QD
     Route: 048
     Dates: start: 20140912
  4. REMODULIN [Suspect]
     Active Substance: TREPROSTINIL
     Indication: PRODUCT USED FOR UNKNOWN INDICATION
     Dosage: 124 UNK, UNK
     Route: 065
  5. ADCIRCA [Concomitant]
     Active Substance: TADALAFIL
     Dosage: 40 MG, QD
     Dates: start: 20141224

REACTIONS (12)
  - Diarrhoea [Unknown]
  - Unevaluable event [Unknown]
  - Nausea [Unknown]
  - Heart rate increased [Unknown]
  - Gastrooesophageal reflux disease [Unknown]
  - Gastrointestinal motility disorder [Recovering/Resolving]
  - Feeling abnormal [Unknown]
  - Dizziness [Unknown]
  - Eye operation [Unknown]
  - Chest pain [Unknown]
  - Dyspnoea [Unknown]
  - Device malfunction [Unknown]

NARRATIVE: CASE EVENT DATE: 20180222
